FAERS Safety Report 10010170 (Version 1)
Quarter: 2014Q1

REPORT INFORMATION
  Report Type: Spontaneous
  Country: US (occurrence: US)
  Receive Date: 20140312
  Receipt Date: 20140312
  Transmission Date: 20141002
  Serious: No
  Sender: FDA-Public Use
  Company Number: US-INCYTE CORPORATION-2013IN001696

PATIENT
  Age: 93 Year
  Sex: Female

DRUGS (19)
  1. JAKAFI [Suspect]
     Indication: MYELOFIBROSIS
     Dosage: 20 MG, AM AND 10 MG, PM
     Route: 048
     Dates: start: 20130628
  2. AMIODARONE [Concomitant]
  3. CITALOPRAM [Concomitant]
  4. FAMOTIDINE [Concomitant]
  5. HYDROCODONE [Concomitant]
  6. ISORBIDE [Concomitant]
  7. LASIX [Concomitant]
  8. LEVOTHYROXINE [Concomitant]
  9. LIPITOR [Concomitant]
  10. METOPROLOL [Concomitant]
  11. PLAVIX [Concomitant]
  12. POTASSIUM [Concomitant]
  13. SPIRONOLACTONE [Concomitant]
  14. TRAZODONE [Concomitant]
  15. VESICARE [Concomitant]
  16. TYLENOL [Concomitant]
  17. COQ10 [Concomitant]
  18. COLACE [Concomitant]
  19. CRANBERRY EXTRACT [Concomitant]

REACTIONS (1)
  - Tooth infection [Unknown]
